FAERS Safety Report 18328988 (Version 1)
Quarter: 2020Q3

REPORT INFORMATION
  Report Type: Spontaneous
  Country: US (occurrence: US)
  Receive Date: 20200930
  Receipt Date: 20200930
  Transmission Date: 20201103
  Serious: No
  Sender: FDA-Public Use
  Company Number: US-ELI_LILLY_AND_COMPANY-US202009011836

PATIENT
  Sex: Male

DRUGS (2)
  1. HUMULIN R U?500 [Suspect]
     Active Substance: INSULIN HUMAN
     Indication: DIABETES MELLITUS
     Dosage: UNK UNK, UNKNOWN
     Route: 058
     Dates: start: 20200909
  2. HYDROCODONE [Concomitant]
     Active Substance: HYDROCODONE
     Indication: DIABETIC NEUROPATHY
     Dosage: 325 MG, QID

REACTIONS (1)
  - Feeling abnormal [Unknown]
